FAERS Safety Report 18089482 (Version 2)
Quarter: 2020Q3

REPORT INFORMATION
  Report Type: Spontaneous
  Country: PT (occurrence: PT)
  Receive Date: 20200730
  Receipt Date: 20200810
  Transmission Date: 20201103
  Serious: Yes (Other)
  Sender: FDA-Public Use
  Company Number: PT-TEVA-2020-PT-1806248

PATIENT
  Age: 54 Year
  Sex: Male
  Weight: 90 kg

DRUGS (8)
  1. DOLUTEGRAVIR + ABACAVIR + LAMIVUDINA [Concomitant]
     Dosage: 1 DOSAGE FORMS
     Route: 048
  2. PLAQUINOL [Suspect]
     Active Substance: HYDROXYCHLOROQUINE SULFATE
     Indication: COVID-19
     Dosage: 400MG 12 / 12H IN D0 AND THEN 200MG 12 / 12H
     Route: 048
     Dates: start: 20200326, end: 20200404
  3. CALCIUM POLYSTYRENE SULFONATE [Concomitant]
     Active Substance: CALCIUM POLYSTYRENE SULFONATE
     Dosage: 2GRAM
  4. PARACETAMOL [Concomitant]
     Active Substance: ACETAMINOPHEN
     Dosage: 1000 MG,AS REQUIRED
     Route: 048
  5. BISACODYL. [Concomitant]
     Active Substance: BISACODYL
     Dosage: 5 MG
     Route: 048
  6. AZITHROMYCIN ANHYDROUS. [Suspect]
     Active Substance: AZITHROMYCIN ANHYDROUS
     Indication: COVID-19
     Dosage: 500 MILLIGRAM DAILY;
     Route: 042
     Dates: start: 20200326, end: 20200331
  7. POTASSIUM DIHYDROGEN PHOSPHATE [Concomitant]
     Active Substance: POTASSIUM PHOSPHATE, MONOBASIC
     Dosage: 10 MILLIEQUIVALENTS
     Route: 042
  8. CEFTRIAXONE. [Concomitant]
     Active Substance: CEFTRIAXONE
     Dosage: 2000 MG
     Route: 042

REACTIONS (2)
  - Hepatocellular injury [Recovered/Resolved]
  - COVID-19 treatment [Unknown]

NARRATIVE: CASE EVENT DATE: 20200326
